FAERS Safety Report 7426335-6 (Version None)
Quarter: 2011Q2

REPORT INFORMATION
  Report Type: 
  Country: None (occurrence: None)
  Receive Date: 20110420
  Receipt Date: 20110412
  Transmission Date: 20111010
  Serious: Yes (Other)
  Sender: FDA-Public Use
  Company Number: B0713290A

PATIENT
  Sex: Female
  Weight: 63 kg

DRUGS (6)
  1. GASTER D [Concomitant]
     Dosage: 40MG PER DAY
     Route: 048
     Dates: start: 20080107
  2. ZOVIRAX [Concomitant]
     Dosage: 1000MG PER DAY
     Route: 048
     Dates: start: 20080107, end: 20080217
  3. RAMELTEON [Concomitant]
     Dosage: 40MG PER DAY
     Route: 042
     Dates: start: 20080108, end: 20080109
  4. FLUCONAZOLE [Concomitant]
     Dosage: 200MG PER DAY
     Route: 048
     Dates: start: 20080107
  5. ALKERAN [Suspect]
     Indication: STEM CELL TRANSPLANT
     Dosage: 100MGM2 PER DAY
     Route: 042
     Dates: start: 20080108, end: 20080109
  6. DEXAMETHASONE [Concomitant]
     Dosage: 40MG PER DAY
     Dates: start: 20080108, end: 20080109

REACTIONS (1)
  - FEBRILE NEUTROPENIA [None]
